FAERS Safety Report 16058750 (Version 5)
Quarter: 2019Q2

REPORT INFORMATION
  Report Type: Report from Study
  Country: FR (occurrence: FR)
  Receive Date: 20190311
  Receipt Date: 20190517
  Transmission Date: 20190711
  Serious: Yes (Hospitalization)
  Sender: FDA-Public Use
  Company Number: FR-JNJFOC-20190241088

PATIENT
  Age: 59 Year
  Sex: Male
  Weight: 98 kg

DRUGS (16)
  1. YONDELIS [Suspect]
     Active Substance: TRABECTEDIN
     Indication: LIPOSARCOMA METASTATIC
     Route: 042
     Dates: start: 20190319
  2. DEXAMETHASONE. [Concomitant]
     Active Substance: DEXAMETHASONE
     Indication: LIPOSARCOMA METASTATIC
     Dosage: CYCLE 1 TO 2
     Route: 042
     Dates: start: 20190104, end: 20190215
  3. DOLIPRANE [Concomitant]
     Active Substance: ACETAMINOPHEN
     Route: 048
  4. INDAPAMIDE. [Concomitant]
     Active Substance: INDAPAMIDE
     Route: 048
  5. YONDELIS [Suspect]
     Active Substance: TRABECTEDIN
     Indication: LIPOSARCOMA METASTATIC
     Dosage: CYCLE 1 TO 2
     Route: 042
     Dates: start: 20190104, end: 20190215
  6. ENDOXAN [Suspect]
     Active Substance: CYCLOPHOSPHAMIDE
     Indication: LIPOSARCOMA METASTATIC
     Dosage: CYCLE 1 TO 2, ONE WEEK ON AND ONE WEEK OFF
     Route: 048
     Dates: start: 20190104, end: 20190222
  7. PLAVIX [Concomitant]
     Active Substance: CLOPIDOGREL BISULFATE
     Route: 048
  8. LERCAN [Concomitant]
     Active Substance: LERCANIDIPINE
     Route: 048
  9. ENDOXAN [Suspect]
     Active Substance: CYCLOPHOSPHAMIDE
     Indication: LIPOSARCOMA METASTATIC
     Route: 048
     Dates: start: 20190319
  10. LIPANTHYL [Concomitant]
     Active Substance: FENOFIBRATE
     Route: 048
  11. INEXIUM [Concomitant]
     Active Substance: ESOMEPRAZOLE
     Route: 048
  12. MOVICOL [Concomitant]
     Active Substance: POLYETHYLENE GLYCOL 3350\POTASSIUM CHLORIDE\SODIUM BICARBONATE\SODIUM CHLORIDE
     Route: 065
  13. EZETROL [Concomitant]
     Active Substance: EZETIMIBE
     Route: 048
  14. OXYCONTIN [Concomitant]
     Active Substance: OXYCODONE HYDROCHLORIDE
     Route: 048
  15. CELECTOL [Concomitant]
     Active Substance: CELIPROLOL HYDROCHLORIDE
     Route: 048
  16. TADENAN [Concomitant]
     Active Substance: PYGEUM
     Route: 048

REACTIONS (1)
  - Pancreatitis acute [Recovered/Resolved]

NARRATIVE: CASE EVENT DATE: 20190226
